FAERS Safety Report 14218149 (Version 2)
Quarter: 2018Q2

REPORT INFORMATION
  Report Type: Spontaneous
  Country: CA (occurrence: CA)
  Receive Date: 20171123
  Receipt Date: 20180615
  Transmission Date: 20180711
  Serious: Yes (Other)
  Sender: FDA-Public Use
  Company Number: IT-APOTEX-2017AP021974

PATIENT
  Age: 86 Year
  Sex: Male

DRUGS (6)
  1. MYCO[PHENOLATE [Suspect]
     Active Substance: MYCOPHENOLATE MOFETIL
     Indication: PEMPHIGOID
     Dosage: 1 G, PER DAY
     Route: 065
  2. PREDNISONE. [Suspect]
     Active Substance: PREDNISONE
     Dosage: 50 MG QD
     Route: 065
  3. PREDNISONE. [Suspect]
     Active Substance: PREDNISONE
     Dosage: 20 MG, QD
     Route: 065
  4. PREDNISONE. [Suspect]
     Active Substance: PREDNISONE
     Indication: PEMPHIGOID
     Dosage: 30 MG, QD
     Route: 065
  5. PREDNISONE. [Suspect]
     Active Substance: PREDNISONE
     Dosage: 60 MG, QD
     Route: 065
  6. CLOBETASOL PROPIONATE. [Suspect]
     Active Substance: CLOBETASOL PROPIONATE
     Indication: PEMPHIGOID
     Route: 061

REACTIONS (1)
  - Kaposi^s sarcoma [Unknown]
